FAERS Safety Report 17315657 (Version 1)
Quarter: 2020Q1

REPORT INFORMATION
  Report Type: Report from Study
  Country: DE (occurrence: DE)
  Receive Date: 20200124
  Receipt Date: 20200124
  Transmission Date: 20200409
  Serious: Yes (Other)
  Sender: FDA-Public Use
  Company Number: DE-AMGEN-DEUSL2019196820

PATIENT
  Age: 52 Year
  Sex: Female

DRUGS (3)
  1. AMGEVITA [Suspect]
     Active Substance: ADALIMUMAB
     Indication: PSORIATIC ARTHROPATHY
     Dosage: 40 MILLIGRAM, Q2WK
     Route: 065
  2. LANTAREL [Concomitant]
     Active Substance: METHOTREXATE SODIUM
     Dosage: 25 MILLIGRAM PER MILLILITRE, QWK
     Dates: start: 20180622, end: 202001
  3. FOLSAURE [Concomitant]
     Active Substance: FOLIC ACID
     Dosage: 5 MILLIGRAM, QWK
     Dates: start: 20180622, end: 202001

REACTIONS (3)
  - Dizziness [Recovered/Resolved]
  - Back pain [Recovered/Resolved]
  - Fatigue [Recovered/Resolved]

NARRATIVE: CASE EVENT DATE: 20190302
